FAERS Safety Report 21123832 (Version 1)
Quarter: 2022Q3

REPORT INFORMATION
  Report Type: Spontaneous
  Country: US (occurrence: US)
  Receive Date: 20220725
  Receipt Date: 20220725
  Transmission Date: 20221026
  Serious: No
  Sender: FDA-Public Use
  Company Number: US-SA-SAC20220719001238

PATIENT
  Sex: Female

DRUGS (1)
  1. DUPIXENT [Suspect]
     Active Substance: DUPILUMAB
     Indication: Nasal polyps
     Dosage: 300 MG, QOW
     Route: 058

REACTIONS (6)
  - Headache [Unknown]
  - Peripheral swelling [Unknown]
  - Eye swelling [Unknown]
  - Dizziness [Unknown]
  - Hypersensitivity [Unknown]
  - Product use in unapproved indication [Unknown]
